FAERS Safety Report 13614012 (Version 5)
Quarter: 2017Q3

REPORT INFORMATION
  Report Type: Report from Study
  Country: CN (occurrence: CN)
  Receive Date: 20170606
  Receipt Date: 20170712
  Transmission Date: 20171127
  Serious: Yes (Hospitalization)
  Sender: FDA-Public Use
  Company Number: CN-TEVA-775945ACC

PATIENT
  Age: 58 Year
  Sex: Female
  Weight: 55 kg

DRUGS (2)
  1. BENDAMUSTINE HYDROCHLORIDE. [Suspect]
     Active Substance: BENDAMUSTINE HYDROCHLORIDE
     Indication: NON-HODGKIN^S LYMPHOMA
     Dosage: (ON FIRST AND SECOND DAYS OF EACH CYCLE OF 21 DAYS)
     Route: 042
     Dates: start: 20150916, end: 20160204
  2. RITUXIMAB. [Suspect]
     Active Substance: RITUXIMAB
     Indication: NON-HODGKIN^S LYMPHOMA
     Route: 042
     Dates: start: 20150916, end: 20160203

REACTIONS (1)
  - Vocal cord polyp [Recovered/Resolved]

NARRATIVE: CASE EVENT DATE: 20170525
